FAERS Safety Report 23407222 (Version 1)
Quarter: 2024Q1

REPORT INFORMATION
  Report Type: Report from Study
  Country: TN (occurrence: TN)
  Receive Date: 20240116
  Receipt Date: 20240116
  Transmission Date: 20240409
  Serious: Yes (Hospitalization)
  Sender: FDA-Public Use
  Company Number: TN-ABBVIE-5589931

PATIENT
  Age: 51 Year
  Sex: Female

DRUGS (2)
  1. HUMIRA [Suspect]
     Active Substance: ADALIMUMAB
     Indication: Crohn^s disease
     Dosage: STRENGTH: 40 MG
     Route: 058
     Dates: start: 20230807, end: 202311
  2. LEVOTHYROXINE [Concomitant]
     Active Substance: LEVOTHYROXINE
     Indication: Thyroid disorder
     Dosage: 1 TABLET

REACTIONS (8)
  - Rectal haemorrhage [Unknown]
  - Agitation [Recovered/Resolved]
  - Anal haemorrhage [Recovered/Resolved]
  - Confusional state [Recovered/Resolved]
  - Colitis [Recovered/Resolved]
  - Drug ineffective [Unknown]
  - Gastrointestinal pain [Recovered/Resolved]
  - Diarrhoea [Recovering/Resolving]

NARRATIVE: CASE EVENT DATE: 20230101
